FAERS Safety Report 6525435-2 (Version None)
Quarter: 2010Q1

REPORT INFORMATION
  Report Type: 
  Country: None (occurrence: None)
  Receive Date: 20100104
  Receipt Date: 20100104
  Transmission Date: 20100710
  Serious: Yes (Disabling, Other)
  Sender: FDA-Public Use
  Company Number: None

PATIENT
  Age: 17 Year
  Sex: Female
  Weight: 49.1 kg

DRUGS (2)
  1. LUPRON DEPOT [Suspect]
     Indication: ENDOMETRIOSIS
     Dates: start: 20050801, end: 20060101
  2. CALCIUM [Concomitant]

REACTIONS (8)
  - ARTHRALGIA [None]
  - AUTOIMMUNE THYROIDITIS [None]
  - BACK PAIN [None]
  - CHRONIC FATIGUE SYNDROME [None]
  - GOITRE [None]
  - NECK PAIN [None]
  - OSTEOPENIA [None]
  - SYNCOPE [None]
